FAERS Safety Report 6620129-7 (Version None)
Quarter: 2010Q1

REPORT INFORMATION
  Report Type: 
  Country: None (occurrence: None)
  Receive Date: 20100308
  Receipt Date: 20100308
  Transmission Date: 20100710
  Serious: Yes (Hospitalization)
  Sender: FDA-Public Use
  Company Number: None

PATIENT
  Sex: Female
  Weight: 74.3899 kg

DRUGS (1)
  1. ZOFRAN [Suspect]
     Indication: VOMITING
     Dosage: 4MG BID TO TID ORAL  ; 8MG BID TO TID ORAL
     Route: 048
     Dates: start: 20100201

REACTIONS (1)
  - DRUG INEFFECTIVE [None]
